FAERS Safety Report 11497214 (Version 3)
Quarter: 2016Q2

REPORT INFORMATION
  Report Type: Report from Study
  Country: JP (occurrence: JP)
  Receive Date: 20150911
  Receipt Date: 20160518
  Transmission Date: 20160815
  Serious: Yes (Hospitalization)
  Sender: FDA-Public Use
  Company Number: JP-BRISTOL-MYERS SQUIBB COMPANY-BMS-2015-059597

PATIENT
  Age: 82 Year
  Sex: Male

DRUGS (1)
  1. NIVOLUMAB [Suspect]
     Active Substance: NIVOLUMAB
     Indication: MALIGNANT MELANOMA
     Dosage: 2 MG/KG, UNK
     Route: 041
     Dates: start: 20150108, end: 20150610

REACTIONS (10)
  - Hypertensive emergency [Recovered/Resolved]
  - Dyskinesia [Recovered/Resolved]
  - C-reactive protein increased [Not Recovered/Not Resolved]
  - Fatigue [Recovered/Resolved]
  - Spinal osteoarthritis [Not Recovered/Not Resolved]
  - Xerosis [Unknown]
  - Dry mouth [Recovered/Resolved]
  - Rhinorrhoea [Recovered/Resolved]
  - Hypertension [Recovered/Resolved]
  - Arthralgia [Not Recovered/Not Resolved]

NARRATIVE: CASE EVENT DATE: 20150109
